FAERS Safety Report 9968743 (Version 1)
Quarter: 2014Q1

REPORT INFORMATION
  Report Type: Report from Study
  Country: US (occurrence: US)
  Receive Date: 20140306
  Receipt Date: 20140306
  Transmission Date: 20141002
  Serious: No
  Sender: FDA-Public Use
  Company Number: US-ABBVIE-13P-163-1140676-00

PATIENT
  Age: 29 Year
  Sex: Female

DRUGS (6)
  1. HUMIRA [Suspect]
     Indication: CROHN^S DISEASE
     Dosage: LOADING DOSE
     Dates: start: 20130821, end: 20130821
  2. HUMIRA [Suspect]
     Dosage: LOADING DOSE
  3. APRISO [Concomitant]
     Indication: PRODUCT USED FOR UNKNOWN INDICATION
  4. BUDESONIDE [Concomitant]
     Indication: CROHN^S DISEASE
  5. IRON [Concomitant]
     Indication: MINERAL SUPPLEMENTATION
  6. MULTI-VITAMINS VITAFIT [Concomitant]
     Indication: PRODUCT USED FOR UNKNOWN INDICATION

REACTIONS (3)
  - Device malfunction [Recovered/Resolved]
  - Incorrect dose administered [Recovered/Resolved]
  - Injection site pain [Recovered/Resolved]
